FAERS Safety Report 7477428-9 (Version None)
Quarter: 2011Q2

REPORT INFORMATION
  Report Type: 
  Country: None (occurrence: None)
  Receive Date: 20110513
  Receipt Date: 20110504
  Transmission Date: 20111010
  Serious: No
  Sender: FDA-Public Use
  Company Number: US-BIOGENIDEC-2011BI017107

PATIENT
  Sex: Female

DRUGS (3)
  1. ZOLOFT [Concomitant]
     Indication: DEPRESSION
  2. KLONOPIN [Concomitant]
     Indication: INSOMNIA
  3. TYSABRI [Suspect]
     Indication: MULTIPLE SCLEROSIS
     Route: 042
     Dates: start: 20110128

REACTIONS (8)
  - CHEST DISCOMFORT [None]
  - COGNITIVE DISORDER [None]
  - MOOD SWINGS [None]
  - INSOMNIA [None]
  - BLOOD PRESSURE INCREASED [None]
  - DRUG SPECIFIC ANTIBODY PRESENT [None]
  - WEIGHT INCREASED [None]
  - CONFUSIONAL STATE [None]
